FAERS Safety Report 4874088-8 (Version None)
Quarter: 2006Q1

REPORT INFORMATION
  Report Type: 
  Country: None (occurrence: None)
  Receive Date: 20060104
  Receipt Date: 20051228
  Transmission Date: 20060701
  Serious: Yes (Other)
  Sender: FDA-Public Use
  Company Number: 2005173240

PATIENT
  Age: 40 Year
  Sex: Female
  Weight: 63.5036 kg

DRUGS (2)
  1. DRAMAMINE [Suspect]
     Indication: MOTION SICKNESS
     Dosage: 6 TO 8 TABLETS DAILY, ORAL
     Route: 048
     Dates: start: 20051217
  2. EXCEDRIN P.M. (DIPHENHYDRAMINE CITRATE PARACETAMOL) [Suspect]
     Indication: INSOMNIA
     Dosage: UP TO 10 TABS FOR NIGHT, ORAL
     Route: 048

REACTIONS (4)
  - HALLUCINATION [None]
  - INCORRECT DOSE ADMINISTERED [None]
  - INSOMNIA [None]
  - OVERDOSE [None]
